APPROVED DRUG PRODUCT: RINVOQ
Active Ingredient: UPADACITINIB
Strength: 15MG
Dosage Form/Route: TABLET, EXTENDED RELEASE;ORAL
Application: N211675 | Product #001
Applicant: ABBVIE INC
Approved: Aug 16, 2019 | RLD: Yes | RS: No | Type: RX

PATENTS:
Patent 8962629 | Expires: Jan 15, 2031
Patent 8962629 | Expires: Jan 15, 2031
Patent 8962629 | Expires: Jan 15, 2031
Patent 8962629 | Expires: Jan 15, 2031
Patent 11512092 | Expires: Oct 17, 2036
Patent 11365198 | Expires: Oct 17, 2036
Patent 11773106 | Expires: Oct 17, 2036
Patent 11976077 | Expires: Oct 17, 2036
Patent 11524964 | Expires: Oct 17, 2036
Patent 11607411 | Expires: Mar 9, 2038
Patent 11564922 | Expires: Mar 9, 2038
Patent 11365198 | Expires: Oct 17, 2036
Patent 11607411 | Expires: Mar 9, 2038
Patent 11512092 | Expires: Oct 17, 2036
Patent 11512092 | Expires: Oct 17, 2036
Patent 11512092 | Expires: Oct 17, 2036
Patent 11795175 | Expires: Oct 17, 2036
Patent 11535624 | Expires: Oct 17, 2036
Patent 11535625 | Expires: Oct 17, 2036
Patent 11773106 | Expires: Oct 17, 2036
Patent 11773106 | Expires: Oct 17, 2036
Patent 11773106 | Expires: Oct 17, 2036
Patent 12365689 | Expires: Oct 17, 2036
Patent 11993605 | Expires: Oct 17, 2036
Patent 11993605 | Expires: Oct 17, 2036
Patent 11993606 | Expires: Oct 17, 2036
Patent 11767326 | Expires: Oct 17, 2036
Patent 8962629 | Expires: Jan 15, 2031
Patent 10995095 | Expires: Oct 17, 2036
Patent 8962629 | Expires: Jan 15, 2031
Patent 10597400 | Expires: Oct 17, 2036
Patent 11564922 | Expires: Mar 9, 2038
Patent 11780848 | Expires: Oct 17, 2036
Patent 8962629 | Expires: Jan 15, 2031
Patent 11198697 | Expires: Oct 17, 2036
Patent 11661425 | Expires: Oct 17, 2036
Patent 12103933 | Expires: Oct 17, 2036
Patent 11773105 | Expires: Oct 17, 2036
Patent 12110298 | Expires: Oct 17, 2036
Patent RE47221 | Expires: Aug 16, 2033
Patent 10981924 | Expires: Oct 17, 2036
Patent 11787815 | Expires: Oct 17, 2036
Patent 12077545 | Expires: Oct 17, 2036
Patent 11780847 | Expires: Oct 17, 2036
Patent 9963459 | Expires: Oct 17, 2036
Patent 11718627 | Expires: Oct 17, 2036
Patent 12110297 | Expires: Oct 17, 2036
Patent 9951080 | Expires: Oct 17, 2036
Patent 10981923 | Expires: Oct 17, 2036
Patent 11680069 | Expires: Oct 17, 2036
Patent 11186584 | Expires: Oct 17, 2036
Patent 10519164 | Expires: Oct 17, 2036

EXCLUSIVITY:
Code: I-919 | Date: May 18, 2026
Code: I-946 | Date: Apr 26, 2027
Code: I-966 | Date: Apr 28, 2028
Code: NPP | Date: Apr 26, 2027
Code: ODE-481 | Date: Apr 26, 2031